FAERS Safety Report 10211024 (Version 1)
Quarter: 2014Q2

REPORT INFORMATION
  Report Type: Spontaneous
  Country: US (occurrence: None)
  Receive Date: 20140530
  Receipt Date: 20140530
  Transmission Date: 20141212
  Serious: No
  Sender: FDA-Public Use
  Company Number: None

PATIENT
  Age: 72 Year
  Sex: Male
  Weight: 90.72 kg

DRUGS (3)
  1. MYRBETRIQ [Suspect]
     Indication: BLADDER SPASM
     Route: 048
     Dates: start: 20140408, end: 20140522
  2. MYRBETRIQ [Suspect]
     Indication: DYSURIA
     Route: 048
     Dates: start: 20140408, end: 20140522
  3. MYRBETRIQ [Suspect]
     Indication: MICTURITION URGENCY
     Route: 048
     Dates: start: 20140408, end: 20140522

REACTIONS (2)
  - Drug ineffective [None]
  - Product quality issue [None]
